FAERS Safety Report 25360443 (Version 1)
Quarter: 2025Q2

REPORT INFORMATION
  Report Type: Spontaneous
  Country: US (occurrence: US)
  Receive Date: 20250527
  Receipt Date: 20250527
  Transmission Date: 20250716
  Serious: Yes (Other)
  Sender: SHILPA MEDICARE
  Company Number: US-KOANAAP-SML-US-2025-00270

PATIENT
  Age: 49 Year
  Sex: Male

DRUGS (7)
  1. APREMILAST [Suspect]
     Active Substance: APREMILAST
     Indication: Psoriasis
  2. TAPINAROF [Concomitant]
     Active Substance: TAPINAROF
     Indication: Pruritus
  3. DOXYCYCLINE [Concomitant]
     Active Substance: DOXYCYCLINE
     Indication: Psoriasis
  4. RISANKIZUMAB [Concomitant]
     Active Substance: RISANKIZUMAB
     Indication: Pruritus
  5. HYDROXYZINE [Concomitant]
     Active Substance: HYDROXYZINE HYDROCHLORIDE
     Indication: Pruritus
  6. PREDNISONE [Concomitant]
     Active Substance: PREDNISONE
     Indication: Pruritus
  7. LISINOPRIL [Concomitant]
     Active Substance: LISINOPRIL
     Indication: Hypertension

REACTIONS (1)
  - Drug eruption [Recovering/Resolving]
